FAERS Safety Report 10435826 (Version 2)
Quarter: 2014Q3

REPORT INFORMATION
  Report Type: Spontaneous
  Country: IT (occurrence: IT)
  Receive Date: 20140908
  Receipt Date: 20140908
  Transmission Date: 20150326
  Serious: Yes (Other)
  Sender: FDA-Public Use
  Company Number: IT-TEVA-501988ISR

PATIENT
  Age: 65 Year
  Sex: Female

DRUGS (3)
  1. FLUOROURACILE TEVA [Suspect]
     Active Substance: FLUOROURACIL
     Indication: PANCREATIC CARCINOMA
     Dosage: 4984 MILLIGRAM DAILY;
     Route: 042
  2. OXALIPLATINO ACCORD [Interacting]
     Active Substance: OXALIPLATIN
     Indication: PANCREATIC CARCINOMA
     Dosage: 151.3 MILLIGRAM DAILY;
     Route: 042
     Dates: start: 20140611, end: 20140611
  3. IRINOTECAN ACTAVIS [Interacting]
     Active Substance: IRINOTECAN
     Indication: PANCREATIC CARCINOMA
     Dosage: 320.4 MILLIGRAM DAILY;
     Route: 042
     Dates: start: 20140611, end: 20140611

REACTIONS (2)
  - Pancytopenia [Recovering/Resolving]
  - Drug interaction [Recovering/Resolving]

NARRATIVE: CASE EVENT DATE: 20140620
